FAERS Safety Report 19434079 (Version 3)
Quarter: 2022Q1

REPORT INFORMATION
  Report Type: Spontaneous
  Country: JP (occurrence: JP)
  Receive Date: 20210618
  Receipt Date: 20220128
  Transmission Date: 20220423
  Serious: Yes (Death, Other)
  Sender: FDA-Public Use
  Company Number: JP-UCBJ-CD202105475UCBPHAPROD

PATIENT
  Age: 42 Year
  Sex: Female

DRUGS (13)
  1. LEVETIRACETAM [Suspect]
     Active Substance: LEVETIRACETAM
     Indication: Epilepsy
     Dosage: 500 MILLIGRAM, 2X/DAY (BID)
     Route: 041
     Dates: start: 20210530, end: 20210531
  2. LEVETIRACETAM [Suspect]
     Active Substance: LEVETIRACETAM
     Dosage: 1000 MILLIGRAM, 2X/DAY (BID)
     Route: 041
     Dates: start: 20210601, end: 20210613
  3. OMEPRAZOLE [Suspect]
     Active Substance: OMEPRAZOLE
     Indication: Prophylaxis against gastrointestinal ulcer
     Dosage: 20 MILLIGRAM, 2X/DAY (BID)
     Route: 042
     Dates: start: 20210530, end: 20210613
  4. VIMPAT [Concomitant]
     Active Substance: LACOSAMIDE
     Indication: Epilepsy
     Dates: start: 20210603, end: 20210613
  5. VANCOMYCIN [Concomitant]
     Active Substance: VANCOMYCIN
     Indication: Infection
     Dates: start: 20210530, end: 20210604
  6. MEROPENEM [Concomitant]
     Active Substance: MEROPENEM
     Indication: Infection
     Dates: start: 20210605, end: 20210607
  7. FOSPHENYTOIN SODIUM [Concomitant]
     Active Substance: FOSPHENYTOIN SODIUM
     Indication: Epilepsy
     Dates: start: 20210601, end: 20210613
  8. THIOPENTAL [Concomitant]
     Active Substance: THIOPENTAL
     Indication: Epilepsy
     Dates: start: 20210601, end: 20210613
  9. CARPERITIDE [Concomitant]
     Active Substance: CARPERITIDE
     Indication: Cardiac failure
     Dates: start: 20210601, end: 20210613
  10. NOREPINEPHRINE [Concomitant]
     Active Substance: NOREPINEPHRINE
     Indication: Blood pressure decreased
     Dates: start: 20210530, end: 20210613
  11. LASIX [Concomitant]
     Active Substance: FUROSEMIDE
     Indication: Cardiac failure
  12. FRUCTOSE\GLYCERIN [Concomitant]
     Active Substance: FRUCTOSE\GLYCERIN
     Indication: Brain oedema
     Dates: start: 20210530, end: 20210607
  13. PROPOFOL [Concomitant]
     Active Substance: PROPOFOL
     Indication: Product used for unknown indication
     Dates: start: 20210530, end: 20210604

REACTIONS (3)
  - Embolism arterial [Fatal]
  - Generalised oedema [Fatal]
  - Off label use [Unknown]

NARRATIVE: CASE EVENT DATE: 20210530
